FAERS Safety Report 12654339 (Version 2)
Quarter: 2016Q4

REPORT INFORMATION
  Report Type: Spontaneous
  Country: DE (occurrence: DE)
  Receive Date: 20160816
  Receipt Date: 20161021
  Transmission Date: 20170207
  Serious: Yes (Other)
  Sender: FDA-Public Use
  Company Number: PHHY2016DE110606

PATIENT
  Age: 76 Year
  Sex: Female

DRUGS (2)
  1. VOLTAREN [Suspect]
     Active Substance: DICLOFENAC SODIUM
     Indication: POLYARTHRITIS
  2. VOLTAREN [Suspect]
     Active Substance: DICLOFENAC SODIUM
     Indication: ARTHROPATHY
     Route: 065

REACTIONS (5)
  - Coronary artery disease [Unknown]
  - Contraindicated product administered [Unknown]
  - Cardiac failure [Unknown]
  - Arteriosclerosis coronary artery [Unknown]
  - Off label use [Unknown]

NARRATIVE: CASE EVENT DATE: 2016
